FAERS Safety Report 18286889 (Version 3)
Quarter: 2021Q3

REPORT INFORMATION
  Report Type: Spontaneous
  Country: US (occurrence: US)
  Receive Date: 20200921
  Receipt Date: 20210812
  Transmission Date: 20211014
  Serious: Yes (Hospitalization, Other)
  Sender: FDA-Public Use
  Company Number: US-SA-2020SA253635

PATIENT
  Sex: Female

DRUGS (2)
  1. ZANTAC [Suspect]
     Active Substance: RANITIDINE HYDROCHLORIDE
     Dosage: UNK
     Route: 048
  2. LISINOPRIL. [Concomitant]
     Active Substance: LISINOPRIL
     Dosage: UNK, QD
     Route: 048

REACTIONS (6)
  - Injury [Unknown]
  - Renal mass [Unknown]
  - Splenic rupture [Unknown]
  - Abdominal pain [Unknown]
  - Renal cancer stage I [Unknown]
  - Anxiety [Unknown]

NARRATIVE: CASE EVENT DATE: 20181128
